FAERS Safety Report 8288932-8 (Version None)
Quarter: 2012Q2

REPORT INFORMATION
  Report Type: 
  Country: None (occurrence: None)
  Receive Date: 20120417
  Receipt Date: 20120409
  Transmission Date: 20120825
  Serious: Yes (Hospitalization)
  Sender: FDA-Public Use
  Company Number: US-BAYER-2012-011512

PATIENT
  Age: 20 Year
  Sex: Female
  Weight: 45.351 kg

DRUGS (2)
  1. YAZ [Suspect]
     Indication: CONTRACEPTION
     Dosage: UNK
     Dates: start: 20060601, end: 20091201
  2. IBUPROFEN (ADVIL) [Concomitant]
     Indication: PAIN
     Dosage: AS DIRECTED

REACTIONS (2)
  - PAIN [None]
  - CHOLECYSTITIS CHRONIC [None]
